FAERS Safety Report 10706847 (Version 1)
Quarter: 2015Q1

REPORT INFORMATION
  Report Type: Spontaneous
  Country: US (occurrence: None)
  Receive Date: 20150112
  Receipt Date: 20150112
  Transmission Date: 20150721
  Serious: Yes (Life-Threatening, Hospitalization)
  Sender: FDA-Public Use
  Company Number: None

PATIENT
  Age: 34 Year
  Sex: Female

DRUGS (2)
  1. CHANTIX [Suspect]
     Active Substance: VARENICLINE TARTRATE
     Dosage: B  TWICE DAILY TAKEN BY MOUTH
     Route: 048
  2. TRAZODONE [Suspect]
     Active Substance: TRAZODONE HYDROCHLORIDE

REACTIONS (5)
  - Head discomfort [None]
  - Depressed mood [None]
  - Anger [None]
  - Abnormal behaviour [None]
  - Intentional overdose [None]

NARRATIVE: CASE EVENT DATE: 20120312
